FAERS Safety Report 4625668-6 (Version None)
Quarter: 2005Q1

REPORT INFORMATION
  Report Type: 
  Country: None (occurrence: None)
  Receive Date: 20050330
  Receipt Date: 20050311
  Transmission Date: 20050727
  Serious: Yes (Death, Other)
  Sender: FDA-Public Use
  Company Number: EWC050343167

PATIENT
  Age: 46 Year
  Sex: Male

DRUGS (1)
  1. XIGRIS [Suspect]
     Indication: SEPSIS
     Dosage: 24 UG/KG/HR
     Dates: start: 20050311, end: 20050313

REACTIONS (7)
  - EPISTAXIS [None]
  - GENERAL PHYSICAL HEALTH DETERIORATION [None]
  - MEDICAL DEVICE COMPLICATION [None]
  - PULMONARY HAEMORRHAGE [None]
  - PULMONARY THROMBOSIS [None]
  - RESPIRATORY TRACT HAEMORRHAGE [None]
  - THROMBOCYTOPENIA [None]
